FAERS Safety Report 10720919 (Version 1)
Quarter: 2015Q1

REPORT INFORMATION
  Report Type: Spontaneous
  Country: US (occurrence: US)
  Receive Date: 20150119
  Receipt Date: 20150119
  Transmission Date: 20150721
  Serious: No
  Sender: FDA-Public Use
  Company Number: US-UNITED THERAPEUTICS-UNT-2014-006450

PATIENT
  Sex: Male
  Weight: 7.12 kg

DRUGS (1)
  1. REMODULIN [Suspect]
     Active Substance: TREPROSTINIL
     Indication: PULMONARY HYPERTENSION
     Dosage: 0.012 ?G/KG/MIN, CONTINUING
     Route: 041
     Dates: start: 20140828

REACTIONS (3)
  - Application site erythema [Unknown]
  - Skin infection [Unknown]
  - Application site discharge [Unknown]

NARRATIVE: CASE EVENT DATE: 2014
